FAERS Safety Report 16525507 (Version 1)
Quarter: 2019Q3

REPORT INFORMATION
  Report Type: Report from Study
  Country: None (occurrence: US)
  Receive Date: 20190702
  Receipt Date: 20190702
  Transmission Date: 20191004
  Serious: Yes (Hospitalization)
  Sender: FDA-Public Use
  Company Number: US-ABBVIE-19K-163-2837022-00

PATIENT
  Sex: Female

DRUGS (1)
  1. MARINOL [Suspect]
     Active Substance: DRONABINOL
     Indication: PRODUCT USED FOR UNKNOWN INDICATION
     Route: 048

REACTIONS (4)
  - Gastrointestinal motility disorder [Unknown]
  - Malnutrition [Unknown]
  - Underweight [Unknown]
  - Decreased appetite [Unknown]
